FAERS Safety Report 6821130-0 (Version None)
Quarter: 2010Q3

REPORT INFORMATION
  Report Type: 
  Country: None (occurrence: None)
  Receive Date: 20100707
  Receipt Date: 20080206
  Transmission Date: 20110219
  Serious: Yes (Other)
  Sender: FDA-Public Use
  Company Number: US-PFIZER INC-2008012192

PATIENT
  Sex: Male
  Weight: 90.7 kg

DRUGS (4)
  1. SERTRALINE [Suspect]
     Indication: LABORATORY TEST ABNORMAL
     Route: 048
  2. HYDROXYZINE [Concomitant]
  3. STRATTERA [Concomitant]
  4. RISPERDAL [Concomitant]

REACTIONS (5)
  - ANXIETY [None]
  - DEPRESSION [None]
  - NERVOUSNESS [None]
  - PARANOIA [None]
  - SLEEP DISORDER [None]
